FAERS Safety Report 7423401-6 (Version None)
Quarter: 2011Q2

REPORT INFORMATION
  Report Type: 
  Country: None (occurrence: None)
  Receive Date: 20110419
  Receipt Date: 20110411
  Transmission Date: 20111010
  Serious: Yes (Hospitalization)
  Sender: FDA-Public Use
  Company Number: CA-ROCHE-770960

PATIENT
  Age: 46 Year
  Sex: Male

DRUGS (12)
  1. MEPRON [Concomitant]
     Route: 048
  2. TENOFOVIR [Suspect]
     Route: 065
  3. DIDANOSINE [Suspect]
     Route: 065
  4. LAMIVUDINE [Suspect]
     Route: 065
  5. PROBENECID [Concomitant]
  6. RITONAVIR [Suspect]
     Route: 065
  7. FLUCONAZOLE [Concomitant]
  8. NIACIN [Concomitant]
  9. GLYBURIDE [Concomitant]
  10. SAQUINAVIR [Suspect]
     Route: 065
  11. AZITHROMYCIN [Concomitant]
  12. CRESTOR [Concomitant]

REACTIONS (6)
  - RENAL FAILURE CHRONIC [None]
  - VOMITING [None]
  - DEHYDRATION [None]
  - DIARRHOEA [None]
  - RENAL FAILURE ACUTE [None]
  - BLOOD CREATININE INCREASED [None]
